FAERS Safety Report 9538083 (Version 10)
Quarter: 2015Q4

REPORT INFORMATION
  Report Type: Report from Study
  Country: US (occurrence: US)
  Receive Date: 20130920
  Receipt Date: 20151009
  Transmission Date: 20160305
  Serious: Yes (Hospitalization)
  Sender: FDA-Public Use
  Company Number: US-BIOGENIDEC-2013BI085645

PATIENT
  Age: 54 Year
  Sex: Female

DRUGS (2)
  1. TYSABRI [Suspect]
     Active Substance: NATALIZUMAB
     Indication: MULTIPLE SCLEROSIS
     Route: 042
     Dates: start: 20070920, end: 20130813
  2. AMPYRA [Concomitant]
     Active Substance: DALFAMPRIDINE

REACTIONS (5)
  - Cerebrovascular accident [Unknown]
  - Urinary tract infection [Unknown]
  - Progressive multifocal leukoencephalopathy [Recovered/Resolved]
  - Seizure [Not Recovered/Not Resolved]
  - Immune reconstitution inflammatory syndrome [Recovered/Resolved]

NARRATIVE: CASE EVENT DATE: 201309
